FAERS Safety Report 6300925-6 (Version None)
Quarter: 2009Q3

REPORT INFORMATION
  Report Type: 
  Country: None (occurrence: None)
  Receive Date: 20090807
  Receipt Date: 20090731
  Transmission Date: 20100115
  Serious: Yes (Hospitalization)
  Sender: FDA-Public Use
  Company Number: FR-JNJFOC-20090800500

PATIENT
  Sex: Female

DRUGS (1)
  1. DURAGESIC-100 [Suspect]
     Indication: SPINAL COMPRESSION FRACTURE
     Route: 062
     Dates: start: 20090619, end: 20090624

REACTIONS (2)
  - AGGRESSION [None]
  - CONFUSIONAL STATE [None]
